APPROVED DRUG PRODUCT: CEFIXIME
Active Ingredient: CEFIXIME
Strength: 400MG
Dosage Form/Route: TABLET;ORAL
Application: A206358 | Product #001
Applicant: FDC LTD
Approved: Dec 17, 2024 | RLD: No | RS: Yes | Type: RX